FAERS Safety Report 7271997-X (Version None)
Quarter: 2011Q1

REPORT INFORMATION
  Report Type: 
  Country: None (occurrence: None)
  Receive Date: 20110131
  Receipt Date: 20110131
  Transmission Date: 20110831
  Serious: Yes (Other)
  Sender: FDA-Public Use
  Company Number: None

PATIENT
  Sex: Male
  Weight: 85.5 kg

DRUGS (1)
  1. METHOTREXATE [Suspect]
     Indication: BONE SARCOMA
     Dosage: 20 GM ONCE IVPB (042)
     Route: 042
     Dates: start: 20110110

REACTIONS (5)
  - APHASIA [None]
  - DYSSTASIA [None]
  - HEMIPARESIS [None]
  - CRYING [None]
  - MENTAL STATUS CHANGES [None]
